FAERS Safety Report 7715888-6 (Version None)
Quarter: 2011Q3

REPORT INFORMATION
  Report Type: 
  Country: None (occurrence: None)
  Receive Date: 20110829
  Receipt Date: 20110829
  Transmission Date: 20111222
  Serious: Yes (Other)
  Sender: FDA-Public Use
  Company Number: None

PATIENT
  Age: 13 Month
  Sex: Male
  Weight: 9.979 kg

DRUGS (1)
  1. INFANT'S PAIN RELIEF ACETAMINOPHEN (OTC) [Suspect]
     Indication: TEETHING
     Dosage: 0.9 ML
     Route: 048
     Dates: start: 20110818, end: 20110829

REACTIONS (1)
  - RESTLESSNESS [None]
